FAERS Safety Report 7383780-5 (Version None)
Quarter: 2011Q1

REPORT INFORMATION
  Report Type: 
  Country: None (occurrence: None)
  Receive Date: 20110328
  Receipt Date: 20110328
  Transmission Date: 20110831
  Serious: Yes (Other)
  Sender: FDA-Public Use
  Company Number: None

PATIENT
  Age: 39 Year
  Sex: Female
  Weight: 65.7716 kg

DRUGS (1)
  1. HYDROXYCUT CAFFEINE FREE 160MG PRO CLINICAL IOVATE HEALTH SCIENCES USA [Suspect]
     Indication: WEIGHT DECREASED
     Dosage: 2 RAPID-RELEASE CAPLETS 3 TIMES DAILY PO
     Route: 048
     Dates: start: 20110319, end: 20110321

REACTIONS (10)
  - LACERATION [None]
  - FALL [None]
  - UNRESPONSIVE TO STIMULI [None]
  - JAW FRACTURE [None]
  - NAUSEA [None]
  - HAEMOPTYSIS [None]
  - LOSS OF CONSCIOUSNESS [None]
  - HEART RATE DECREASED [None]
  - DIZZINESS [None]
  - SYNCOPE [None]
